FAERS Safety Report 20746054 (Version 1)
Quarter: 2022Q2

REPORT INFORMATION
  Report Type: Spontaneous
  Country: US (occurrence: US)
  Receive Date: 20220425
  Receipt Date: 20220425
  Transmission Date: 20220721
  Serious: No
  Sender: FDA-Public Use
  Company Number: US-MIRM-000303

PATIENT
  Sex: Female

DRUGS (6)
  1. LIVMARLI [Suspect]
     Active Substance: MARALIXIBAT CHLORIDE
     Indication: Product used for unknown indication
     Route: 048
     Dates: start: 20211229
  2. 1523936 (GLOBALC3Sep19): Simvastatin [Concomitant]
  3. 1328777 (GLOBALC3Sep19): Ursodiol [Concomitant]
  4. 2382297 (GLOBALC3Sep19): Multivitamin Children^s [Concomitant]
  5. 1327788 (GLOBALC3Sep19): Phytonadione [Concomitant]
  6. 1328139 (GLOBALC3Sep19): Rifampin+SyrSpend SF [Concomitant]

REACTIONS (5)
  - Total bile acids increased [Unknown]
  - Nasopharyngitis [Unknown]
  - Blood bilirubin increased [Unknown]
  - Vitamin D decreased [Unknown]
  - Cough [Unknown]
